FAERS Safety Report 18735610 (Version 1)
Quarter: 2021Q1

REPORT INFORMATION
  Report Type: Spontaneous
  Country: FR (occurrence: FR)
  Receive Date: 20210113
  Receipt Date: 20210113
  Transmission Date: 20210419
  Serious: Yes (Hospitalization)
  Sender: FDA-Public Use
  Company Number: FR-009507513-2101FRA004035

PATIENT
  Age: 83 Year
  Sex: Female
  Weight: 70 kg

DRUGS (7)
  1. IRBESARTAN. [Concomitant]
     Active Substance: IRBESARTAN
     Dosage: 150 MILLIGRAM, QD
     Route: 048
  2. DAPTOMYCIN. [Suspect]
     Active Substance: DAPTOMYCIN
     Indication: SEPSIS
     Dosage: 500 MILLIGRAM, QD
     Route: 042
     Dates: start: 20200920, end: 20200925
  3. SERETIDE [Concomitant]
     Active Substance: FLUTICASONE PROPIONATE\SALMETEROL XINAFOATE
     Dosage: 2 DOSAGE FORM, QD
     Route: 055
  4. PERFALGAN [Concomitant]
     Active Substance: ACETAMINOPHEN
     Route: 042
     Dates: start: 20200916, end: 20200927
  5. VENTOLIN [Concomitant]
     Active Substance: ALBUTEROL SULFATE
     Dosage: 1 DOSAGE FORM
     Route: 055
  6. LANSOPRAZOLE. [Concomitant]
     Active Substance: LANSOPRAZOLE
     Dosage: 30 MILLIGRAM, QD
     Route: 048
  7. ELIQUIS [Concomitant]
     Active Substance: APIXABAN
     Dosage: 1 DOSAGE FORM, QD
     Route: 048

REACTIONS (1)
  - Hepatitis [Not Recovered/Not Resolved]

NARRATIVE: CASE EVENT DATE: 20200925
